FAERS Safety Report 25413602 (Version 1)
Quarter: 2025Q2

REPORT INFORMATION
  Report Type: Spontaneous
  Country: FR (occurrence: FR)
  Receive Date: 20250609
  Receipt Date: 20250609
  Transmission Date: 20250717
  Serious: Yes (Death, Congenital Anomaly, Other)
  Sender: NOVARTIS
  Company Number: FR-002147023-NVSC2025FR091441

PATIENT

DRUGS (2)
  1. KESIMPTA [Suspect]
     Active Substance: OFATUMUMAB
     Indication: Foetal exposure during pregnancy
     Route: 064
     Dates: start: 20241104
  2. KESIMPTA [Suspect]
     Active Substance: OFATUMUMAB
     Dosage: MATERNAL EXPOSURE DURING PREGNANCY: UNK, QMO
     Route: 064
     Dates: start: 20241105

REACTIONS (3)
  - Foetal death [Fatal]
  - Potter^s syndrome [Unknown]
  - Foetal exposure during pregnancy [Unknown]
